FAERS Safety Report 17863276 (Version 11)
Quarter: 2021Q1

REPORT INFORMATION
  Report Type: Other
  Country: DE (occurrence: DE)
  Receive Date: 20200605
  Receipt Date: 20210308
  Transmission Date: 20210419
  Serious: Yes (Hospitalization, Other)
  Sender: FDA-Public Use
  Company Number: DE-ROCHE-2610228

PATIENT
  Age: 68 Year
  Sex: Female
  Weight: 87 kg

DRUGS (24)
  1. ROACTEMRA [Suspect]
     Active Substance: TOCILIZUMAB
     Indication: GIANT CELL ARTERITIS
     Route: 058
     Dates: start: 20200518, end: 20200622
  2. ROACTEMRA [Suspect]
     Active Substance: TOCILIZUMAB
     Route: 058
     Dates: start: 20201014
  3. PREDNISOLONE. [Concomitant]
     Active Substance: PREDNISOLONE
     Route: 065
  4. ROACTEMRA [Suspect]
     Active Substance: TOCILIZUMAB
     Route: 058
  5. ROACTEMRA [Suspect]
     Active Substance: TOCILIZUMAB
     Route: 058
  6. ALENDRONIC ACID [Concomitant]
     Active Substance: ALENDRONIC ACID
  7. METFORMIN [Concomitant]
     Active Substance: METFORMIN HYDROCHLORIDE
     Dosage: (0?1?0)
  8. METFORMIN [Concomitant]
     Active Substance: METFORMIN HYDROCHLORIDE
     Dosage: (1/2?0?1/2)
  9. PREDNISOLONE. [Concomitant]
     Active Substance: PREDNISOLONE
  10. RAMIPRIL. [Concomitant]
     Active Substance: RAMIPRIL
     Dosage: 1/2?0?0
  11. URSOFALK [Concomitant]
     Active Substance: URSODIOL
  12. EUTHYROX [Concomitant]
     Active Substance: LEVOTHYROXINE SODIUM
     Route: 065
  13. ROACTEMRA [Suspect]
     Active Substance: TOCILIZUMAB
     Indication: RHEUMATOID ARTHRITIS
     Route: 058
     Dates: start: 20200525, end: 20200629
  14. CORTISONE [Suspect]
     Active Substance: CORTISONE
     Route: 065
     Dates: start: 2020
  15. PREDNISOLONE. [Concomitant]
     Active Substance: PREDNISOLONE
     Route: 065
  16. TORASEMIDE [Concomitant]
     Active Substance: TORSEMIDE
     Dosage: 5 MG (0.5?0?0)
  17. ROACTEMRA [Suspect]
     Active Substance: TOCILIZUMAB
     Indication: GIANT CELL ARTERITIS
     Route: 042
     Dates: start: 20200406, end: 20200504
  18. JARDIANCE [Suspect]
     Active Substance: EMPAGLIFLOZIN
     Indication: PRODUCT USED FOR UNKNOWN INDICATION
     Route: 065
  19. PREDNISOLONE. [Concomitant]
     Active Substance: PREDNISOLONE
  20. PREDNISOLONE. [Concomitant]
     Active Substance: PREDNISOLONE
  21. PREDNISOLONE. [Concomitant]
     Active Substance: PREDNISOLONE
  22. PANTOPRAZOLE [Concomitant]
     Active Substance: PANTOPRAZOLE
  23. CORTISONE [Suspect]
     Active Substance: CORTISONE
     Indication: GIANT CELL ARTERITIS
     Route: 065
     Dates: start: 20200406
  24. TORASEMIDE [Concomitant]
     Active Substance: TORSEMIDE
     Dosage: 2?0?0

REACTIONS (46)
  - Injection site haemorrhage [Recovered/Resolved]
  - C-reactive protein increased [Not Recovered/Not Resolved]
  - Dyspnoea [Recovering/Resolving]
  - Injection site erythema [Recovered/Resolved]
  - Sensitive skin [Unknown]
  - Nasopharyngitis [Not Recovered/Not Resolved]
  - Blood creatinine decreased [Not Recovered/Not Resolved]
  - Violence-related symptom [Recovered/Resolved]
  - Toothache [Recovered/Resolved]
  - Gait disturbance [Recovered/Resolved]
  - Pulmonary function test abnormal [Recovered/Resolved]
  - Hypertension [Recovered/Resolved]
  - Hepatotoxicity [Not Recovered/Not Resolved]
  - Abdominal pain lower [Not Recovered/Not Resolved]
  - Hyperhidrosis [Not Recovered/Not Resolved]
  - General physical health deterioration [Unknown]
  - Alanine aminotransferase increased [Recovering/Resolving]
  - Tumour marker increased [Not Recovered/Not Resolved]
  - Fluid retention [Not Recovered/Not Resolved]
  - Hypotension [Recovered/Resolved]
  - Pruritus [Not Recovered/Not Resolved]
  - Visual impairment [Not Recovered/Not Resolved]
  - Injection site pain [Not Recovered/Not Resolved]
  - Dizziness [Unknown]
  - Gamma-glutamyltransferase increased [Recovering/Resolving]
  - Full blood count decreased [Not Recovered/Not Resolved]
  - Biliary dilatation [Unknown]
  - Vulvovaginal inflammation [Recovered/Resolved]
  - Intra-abdominal haematoma [Recovered/Resolved]
  - Pain [Not Recovered/Not Resolved]
  - Pneumonitis [Not Recovered/Not Resolved]
  - Vasoconstriction [Not Recovered/Not Resolved]
  - Blood glucose increased [Not Recovered/Not Resolved]
  - Aneurysm [Not Recovered/Not Resolved]
  - Diarrhoea [Not Recovered/Not Resolved]
  - Headache [Not Recovered/Not Resolved]
  - Aggression [Recovered/Resolved]
  - Weight increased [Not Recovered/Not Resolved]
  - Pruritus [Recovered/Resolved]
  - Injection site pruritus [Recovered/Resolved]
  - Abnormal sensation in eye [Recovering/Resolving]
  - Aspartate aminotransferase increased [Recovering/Resolving]
  - Dizziness [Recovered/Resolved]
  - Diverticulitis [Unknown]
  - Computerised tomogram liver abnormal [Not Recovered/Not Resolved]
  - Infection [Unknown]

NARRATIVE: CASE EVENT DATE: 2020
